FAERS Safety Report 6761138-7 (Version None)
Quarter: 2010Q2

REPORT INFORMATION
  Report Type: 
  Country: None (occurrence: None)
  Receive Date: 20100608
  Receipt Date: 20100602
  Transmission Date: 20101027
  Serious: Yes (Hospitalization)
  Sender: FDA-Public Use
  Company Number: FR-SANOFI-AVENTIS-2010SA032369

PATIENT
  Age: 60 Year
  Sex: Male

DRUGS (1)
  1. APIDRA [Suspect]
     Route: 058
     Dates: start: 20100402

REACTIONS (1)
  - TINNITUS [None]
